FAERS Safety Report 8861547 (Version 1)
Quarter: 2012Q4

REPORT INFORMATION
  Report Type: Spontaneous
  Country: US (occurrence: None)
  Receive Date: 20121022
  Receipt Date: 20121022
  Transmission Date: 20130627
  Serious: Yes (Other)
  Sender: FDA-Public Use
  Company Number: JPI-P-025413

PATIENT
  Age: 38 Year
  Sex: Female
  Weight: 63.05 kg

DRUGS (29)
  1. XYREM [Suspect]
     Indication: NARCOLEPSY
     Route: 048
     Dates: start: 20050420
  2. XYREM [Suspect]
     Indication: EXCESSIVE DAYTIME SLEEPINESS
     Route: 048
     Dates: start: 20050420
  3. XYREM [Suspect]
     Route: 048
     Dates: start: 20050420
  4. XYREM [Suspect]
     Indication: NARCOLEPSY
     Dates: start: 20050420
  5. XYREM [Suspect]
     Indication: EXCESSIVE DAYTIME SLEEPINESS
     Dates: start: 20050420
  6. XYREM [Suspect]
     Dates: start: 20050420
  7. XYREM [Suspect]
     Indication: NARCOLEPSY
     Route: 048
  8. XYREM [Suspect]
     Indication: EXCESSIVE DAYTIME SLEEPINESS
     Route: 048
  9. XYREM [Suspect]
     Route: 048
  10. XYREM [Suspect]
     Indication: NARCOLEPSY
     Dates: end: 2012
  11. XYREM [Suspect]
     Indication: EXCESSIVE DAYTIME SLEEPINESS
     Dates: end: 2012
  12. XYREM [Suspect]
     Dates: end: 2012
  13. XYREM [Suspect]
     Indication: NARCOLEPSY
     Route: 048
  14. XYREM [Suspect]
     Indication: EXCESSIVE DAYTIME SLEEPINESS
     Route: 048
  15. XYREM [Suspect]
     Route: 048
  16. XYREM [Suspect]
     Indication: NARCOLEPSY
     Route: 048
  17. XYREM [Suspect]
     Indication: EXCESSIVE DAYTIME SLEEPINESS
     Route: 048
  18. XYREM [Suspect]
     Route: 048
  19. GEODON [Suspect]
     Indication: BIPOLAR DISORDER
     Route: 048
     Dates: start: 2006, end: 201111
  20. ABILIFY [Suspect]
     Indication: BIPOLAR DISORDER
     Route: 048
     Dates: start: 201111, end: 201207
  21. ZONISAMIDE [Suspect]
     Indication: BIPOLAR DISORDER
     Route: 048
     Dates: start: 2006, end: 201209
  22. METHYLPHENIDATE HYDROCHLORIDE [Concomitant]
  23. LEVOTHYROXINE [Concomitant]
  24. MODAFINIL [Concomitant]
  25. LIOTHYRONINE [Concomitant]
  26. ASPIRIN [Concomitant]
  27. MAGNESIUM [Concomitant]
  28. IRON [Concomitant]
  29. GABAPENTIN [Concomitant]

REACTIONS (10)
  - Somnambulism [None]
  - Confusional state [None]
  - Restless legs syndrome [None]
  - Tardive dyskinesia [None]
  - Transient ischaemic attack [None]
  - Hypothyroidism [None]
  - Oral herpes [None]
  - Sleep apnoea syndrome [None]
  - Insomnia [None]
  - Night sweats [None]
